FAERS Safety Report 23530919 (Version 2)
Quarter: 2024Q2

REPORT INFORMATION
  Report Type: Spontaneous
  Country: US (occurrence: US)
  Receive Date: 20240216
  Receipt Date: 20240523
  Transmission Date: 20240716
  Serious: Yes (Hospitalization)
  Sender: FDA-Public Use
  Company Number: US-SA-SAC20240215000325

PATIENT
  Age: 48 Year
  Sex: Male

DRUGS (4)
  1. ELOCTATE [Suspect]
     Active Substance: EFMOROCTOCOG ALFA
     Indication: Factor VIII deficiency
     Dosage: 3530 UNITS (3177-3883) , BIW
     Route: 042
     Dates: start: 202312
  2. ELOCTATE [Suspect]
     Active Substance: EFMOROCTOCOG ALFA
     Indication: Factor VIII deficiency
     Dosage: 3530 UNITS (3177-3883) , BIW
     Route: 042
     Dates: start: 202312
  3. ELOCTATE [Suspect]
     Active Substance: EFMOROCTOCOG ALFA
     Dosage: 3530 UNITS (3177-3883) , PRN
     Route: 042
     Dates: start: 202312
  4. ELOCTATE [Suspect]
     Active Substance: EFMOROCTOCOG ALFA
     Dosage: 3530 UNITS (3177-3883) , PRN
     Route: 042
     Dates: start: 202312

REACTIONS (4)
  - Joint lock [Unknown]
  - Blood potassium decreased [Unknown]
  - Muscle spasms [Unknown]
  - Blood electrolytes decreased [Unknown]

NARRATIVE: CASE EVENT DATE: 20231223
